FAERS Safety Report 6146853-0 (Version None)
Quarter: 2009Q2

REPORT INFORMATION
  Report Type: 
  Country: None (occurrence: None)
  Receive Date: 20090407
  Receipt Date: 20090326
  Transmission Date: 20091009
  Serious: Yes (Hospitalization, Other)
  Sender: FDA-Public Use
  Company Number: FR-PFIZER INC-2006108647

PATIENT

DRUGS (8)
  1. LYRICA [Suspect]
     Indication: PAIN
     Dosage: 75 MG, 1X/DAY
     Dates: start: 20060601, end: 20060713
  2. LYRICA [Suspect]
     Indication: TEMPORAL ARTERITIS
  3. LYRICA [Suspect]
     Indication: ARTHRALGIA
  4. LYRICA [Suspect]
     Indication: FACIAL NEURALGIA
  5. RITONAVIR [Concomitant]
  6. TENOFOVIR DISOPROXIL FUMARATE [Concomitant]
  7. ZIDOVUDINE [Concomitant]
  8. PARACETAMOL [Concomitant]

REACTIONS (16)
  - BLINDNESS [None]
  - CHROMATOPSIA [None]
  - CONSTIPATION [None]
  - DRY EYE [None]
  - DRY MOUTH [None]
  - DYSGRAPHIA [None]
  - EJACULATION DISORDER [None]
  - ERECTILE DYSFUNCTION [None]
  - FACIAL PAIN [None]
  - NEUROPATHY PERIPHERAL [None]
  - OPTIC NERVE DISORDER [None]
  - SCOTOMA [None]
  - SUICIDAL IDEATION [None]
  - VISION BLURRED [None]
  - VISUAL IMPAIRMENT [None]
  - WEIGHT DECREASED [None]
